FAERS Safety Report 6247126-8 (Version None)
Quarter: 2009Q2

REPORT INFORMATION
  Report Type: 
  Country: None (occurrence: None)
  Receive Date: 20090626
  Receipt Date: 20090622
  Transmission Date: 20091009
  Serious: Yes (Other)
  Sender: FDA-Public Use
  Company Number: CA-ROXANE LABORATORIES, INC.-2009-RO-00600RO

PATIENT
  Age: 59 Year
  Sex: Female

DRUGS (16)
  1. CLARITHROMYCIN [Suspect]
     Indication: BRONCHITIS
     Dosage: 1000 MG
  2. MYCOPHENOLATE MOFETIL [Suspect]
     Indication: IMMUNOSUPPRESSANT DRUG THERAPY
     Dosage: 1000 MG
  3. CALCIUM CARBONATE [Suspect]
     Dosage: 800 MG
  4. TACROLIMUS [Suspect]
     Indication: IMMUNOSUPPRESSANT DRUG THERAPY
     Dosage: 3 MG
  5. ATORVASTATIN CALCIUM [Suspect]
     Dosage: 20 MG
  6. CLOPIDOGREL [Suspect]
     Dosage: 75 MG
  7. ACETYLSALICYLIC ACID [Suspect]
     Dosage: 81 MG
  8. LEVOTHYROXINE SODIUM [Suspect]
     Dosage: 0.025 MG
  9. DILTIAZEM [Suspect]
     Dosage: 240 MG
  10. HYDROCHLOROTHIAZIDE [Suspect]
     Dosage: 25 MG
  11. QUINAPRIL [Suspect]
     Dosage: 5 MG
  12. FOLIC ACID [Suspect]
     Dosage: 5 MG
  13. POTASSIUM CHLORIDE [Suspect]
     Dosage: 20 MEQ
  14. VITAMIN D [Suspect]
  15. GLUCOSAMINE [Suspect]
  16. MOXIFLOXACIN HCL [Concomitant]
     Indication: BRONCHITIS
     Dosage: 400 MG

REACTIONS (3)
  - BRONCHITIS [None]
  - DRUG INTERACTION [None]
  - NEPHROPATHY TOXIC [None]
